FAERS Safety Report 25516005 (Version 3)
Quarter: 2025Q3

REPORT INFORMATION
  Report Type: Spontaneous
  Country: JP (occurrence: JP)
  Receive Date: 20250704
  Receipt Date: 20250711
  Transmission Date: 20251020
  Serious: Yes (Other)
  Sender: MERCK SHARP & DOHME LLC
  Company Number: JP-009507513-2302289

PATIENT
  Age: 7 Decade
  Sex: Male

DRUGS (5)
  1. KEYTRUDA [Suspect]
     Active Substance: PEMBROLIZUMAB
     Indication: Oropharyngeal cancer
  2. CISPLATIN [Suspect]
     Active Substance: CISPLATIN
     Indication: Oropharyngeal cancer
  3. PACLITAXEL [Suspect]
     Active Substance: PACLITAXEL
     Indication: Oropharyngeal cancer
  4. FLUOROURACIL [Suspect]
     Active Substance: FLUOROURACIL
     Indication: Oropharyngeal cancer
  5. PREDNISOLONE [Suspect]
     Active Substance: PREDNISOLONE
     Indication: Oropharyngeal cancer

REACTIONS (8)
  - Immune-mediated lung disease [Unknown]
  - Vocal cord paralysis [Unknown]
  - Therapy partial responder [Unknown]
  - Malignant neoplasm progression [Unknown]
  - Resorption bone increased [Unknown]
  - Pneumonia aspiration [Unknown]
  - Inflammation [Unknown]
  - Dysphonia [Unknown]
